FAERS Safety Report 5808848-3 (Version None)
Quarter: 2008Q3

REPORT INFORMATION
  Report Type: 
  Country: None (occurrence: None)
  Receive Date: 20080714
  Receipt Date: 20080701
  Transmission Date: 20090109
  Serious: Yes (Hospitalization)
  Sender: FDA-Public Use
  Company Number: US-ELI_LILLY_AND_COMPANY-US200806000104

PATIENT
  Sex: Female

DRUGS (7)
  1. CYMBALTA [Suspect]
     Dosage: 1 D/F, UNK
     Dates: start: 20050101, end: 20080101
  2. CYMBALTA [Suspect]
     Dosage: 60 MG, UNK
     Dates: start: 20080101, end: 20080101
  3. CYMBALTA [Suspect]
     Dosage: 30 MG, UNK
     Dates: start: 20080101, end: 20080101
  4. CYMBALTA [Suspect]
     Dosage: 30 MG, QOD
     Dates: start: 20080101, end: 20080611
  5. TRAZODONE HCL [Concomitant]
     Indication: SLEEP DISORDER
  6. KLONOPIN [Concomitant]
  7. ZOLOFT [Concomitant]
     Dosage: UNK, QOD

REACTIONS (8)
  - AGITATION [None]
  - DEPRESSED MOOD [None]
  - DIZZINESS [None]
  - FEELING ABNORMAL [None]
  - HYPERTENSION [None]
  - MALAISE [None]
  - NAUSEA [None]
  - SUICIDAL IDEATION [None]
